FAERS Safety Report 10724990 (Version 4)
Quarter: 2015Q2

REPORT INFORMATION
  Report Type: Report from Study
  Country: JP (occurrence: JP)
  Receive Date: 20150120
  Receipt Date: 20150603
  Transmission Date: 20150821
  Serious: Yes (Death)
  Sender: FDA-Public Use
  Company Number: PHHY2015JP005042

PATIENT
  Age: 81 Year
  Sex: Female

DRUGS (4)
  1. EXELON [Suspect]
     Active Substance: RIVASTIGMINE TARTRATE
     Dosage: PATCH5(CM2),  QD
     Route: 062
     Dates: start: 20130511, end: 20130607
  2. EXELON [Suspect]
     Active Substance: RIVASTIGMINE TARTRATE
     Dosage: PATCH10(CM2), QD
     Route: 062
     Dates: start: 20130629, end: 20150105
  3. EXELON [Suspect]
     Active Substance: RIVASTIGMINE TARTRATE
     Indication: DEMENTIA ALZHEIMER^S TYPE
     Dosage: PATCH2.5(CM2), QD
     Route: 062
     Dates: start: 20130413, end: 20130510
  4. EXELON [Suspect]
     Active Substance: RIVASTIGMINE TARTRATE
     Dosage: PATCH7.5(CM2), QD
     Route: 062
     Dates: start: 20130608, end: 20130628

REACTIONS (2)
  - Sudden death [Fatal]
  - Application site erythema [Recovering/Resolving]

NARRATIVE: CASE EVENT DATE: 20130629
